FAERS Safety Report 6248401-3 (Version None)
Quarter: 2009Q2

REPORT INFORMATION
  Report Type: 
  Country: None (occurrence: None)
  Receive Date: 20090629
  Receipt Date: 20090624
  Transmission Date: 20091009
  Serious: Yes (Death, Life-Threatening, Hospitalization, Other)
  Sender: FDA-Public Use
  Company Number: PHEH2009US06522

PATIENT
  Sex: Female
  Weight: 58.503 kg

DRUGS (14)
  1. RECLAST [Suspect]
     Indication: OSTEOPOROSIS POSTMENOPAUSAL
     Dosage: 5 MG ONCE IN A YEAR
     Dates: start: 20090610
  2. AMBIEN [Concomitant]
     Indication: INSOMNIA
     Dosage: 10MG AT BEDTIME
     Route: 048
  3. DILAUDID [Concomitant]
     Indication: DISCOMFORT
     Dosage: 2MG THREE TIMES DAILY
     Route: 048
  4. NAMENDA [Concomitant]
     Dosage: 10MG TWICE DAILY
     Route: 048
  5. BENICAR HCT [Concomitant]
     Dosage: 20/12.5MG TWICE DAILY
     Route: 048
  6. TOPROL-XL [Concomitant]
     Dosage: 100MG TWICE DAILY
     Route: 048
  7. VYTORIN [Concomitant]
     Dosage: 10/40MG ONCE DAILY
     Route: 048
  8. TYLENOL (CAPLET) [Concomitant]
     Dosage: FOUR TO SIX DAILY AS NEEDED
     Route: 048
  9. EXELON [Concomitant]
     Dosage: 1.5MG TWICE DAILY
     Route: 048
  10. PANTOPRAZOLE SODIUM [Concomitant]
     Dosage: 40MG TWICE DAILY
     Route: 048
  11. LOTREL [Concomitant]
     Dosage: 5/20MG TWICE DAILY
     Route: 048
  12. MULTI-VITAMINS [Concomitant]
  13. CALCIUM WITH VITAMIN D [Concomitant]
     Dosage: ONE DAILY
     Route: 048
  14. ASPIRIN [Concomitant]
     Dosage: 81MG DAILY
     Route: 048

REACTIONS (17)
  - ANOREXIA [None]
  - ANXIETY [None]
  - ASTHENIA [None]
  - BLOOD CREATININE INCREASED [None]
  - BRADYCARDIA [None]
  - DEATH [None]
  - DEPRESSED LEVEL OF CONSCIOUSNESS [None]
  - DYSPNOEA [None]
  - HYPOTENSION [None]
  - LETHARGY [None]
  - NASAL FLARING [None]
  - RALES [None]
  - RENAL FAILURE [None]
  - RESPIRATORY DISTRESS [None]
  - RESPIRATORY RATE INCREASED [None]
  - TACHYPNOEA [None]
  - UNRESPONSIVE TO STIMULI [None]
